FAERS Safety Report 6183350-0 (Version None)
Quarter: 2009Q2

REPORT INFORMATION
  Report Type: 
  Country: None (occurrence: None)
  Receive Date: 20090506
  Receipt Date: 20090501
  Transmission Date: 20091009
  Serious: Yes (Hospitalization)
  Sender: FDA-Public Use
  Company Number: 09GB001089

PATIENT
  Age: 16 Year
  Sex: Male
  Weight: 60 kg

DRUGS (4)
  1. IBUPROFEN [Suspect]
     Indication: ABDOMINAL PAIN
     Dosage: 400 MG, TID, ORAL
     Route: 048
     Dates: start: 20090418, end: 20090424
  2. ESCITALOPRAM [Suspect]
     Indication: PANIC ATTACK
     Dosage: 10 MG, QD, ORAL
     Route: 048
     Dates: start: 20090418, end: 20090424
  3. AMOXICILLIN TRIHYDRATE [Concomitant]
  4. TERBUTALINE SULFATE [Concomitant]

REACTIONS (2)
  - DIARRHOEA [None]
  - GASTROINTESTINAL HAEMORRHAGE [None]
